FAERS Safety Report 6269850-3 (Version None)
Quarter: 2009Q3

REPORT INFORMATION
  Report Type: 
  Country: None (occurrence: None)
  Receive Date: 20090714
  Receipt Date: 20080219
  Transmission Date: 20100115
  Serious: Yes (Other)
  Sender: FDA-Public Use
  Company Number: 54973 AE # 002

PATIENT
  Age: 6 Month
  Sex: Male
  Weight: 10.8863 kg

DRUGS (1)
  1. TEETHING TABLETS / HYLAND'S INC. [Suspect]
     Dosage: 2 TABLETS ORALLY X 1
     Route: 048

REACTIONS (1)
  - CONVULSION [None]
